FAERS Safety Report 16375416 (Version 10)
Quarter: 2021Q1

REPORT INFORMATION
  Report Type: Spontaneous
  Country: JP (occurrence: JP)
  Receive Date: 20190531
  Receipt Date: 20210129
  Transmission Date: 20210419
  Serious: Yes (Hospitalization)
  Sender: FDA-Public Use
  Company Number: JP-AMGEN-JPNSP2019083717

PATIENT
  Age: 73 Year
  Sex: Female
  Weight: 64.8 kg

DRUGS (23)
  1. DARBEPOETIN ALFA [Concomitant]
     Active Substance: DARBEPOETIN ALFA
     Dosage: 20 MICROGRAM, QWK
     Route: 065
     Dates: start: 20200519
  2. OXAROL [Concomitant]
     Active Substance: MAXACALCITOL
     Dosage: 2.5 UG, Q56H
     Route: 042
     Dates: start: 20191114, end: 20200109
  3. FESIN [SACCHARATED IRON OXIDE] [Concomitant]
     Active Substance: IRON SUCROSE
     Dosage: 40 MILLIGRAM, QWK
     Route: 041
     Dates: start: 20200416
  4. DARBEPOETIN ALFA [Concomitant]
     Active Substance: DARBEPOETIN ALFA
     Dosage: 15 UG, QW
     Route: 065
     Dates: end: 20190305
  5. DARBEPOETIN ALFA [Concomitant]
     Active Substance: DARBEPOETIN ALFA
     Dosage: 20 MICROGRAM, QWK
     Route: 065
     Dates: start: 20191114, end: 20200414
  6. DARBEPOETIN ALFA [Concomitant]
     Active Substance: DARBEPOETIN ALFA
     Dosage: 15 MICROGRAM, QWK
     Route: 065
     Dates: start: 20200423, end: 20200512
  7. OXAROL [Concomitant]
     Active Substance: MAXACALCITOL
     Dosage: 2.5 UG, Q56H
     Route: 042
     Dates: start: 20180626, end: 20181016
  8. ROCALTROL [Concomitant]
     Active Substance: CALCITRIOL
     Dosage: 1.5 UG, Q84H
     Route: 042
     Dates: start: 20190416, end: 20190615
  9. DARBEPOETIN ALFA [Concomitant]
     Active Substance: DARBEPOETIN ALFA
     Dosage: 20 UG, QW
     Route: 065
     Dates: start: 20190312, end: 20191107
  10. ROCALTROL [Concomitant]
     Active Substance: CALCITRIOL
     Dosage: 1.5 UG, Q56H
     Route: 042
     Dates: start: 20190618, end: 20191112
  11. ROCALTROL [Concomitant]
     Active Substance: CALCITRIOL
     Dosage: 1.0 UG, Q56H
     Route: 042
     Dates: start: 20181113, end: 20190305
  12. PARSABIV [Suspect]
     Active Substance: ETELCALCETIDE HYDROCHLORIDE
     Indication: HYPERPARATHYROIDISM SECONDARY
     Dosage: 2.5 MG, Q56H
     Route: 010
     Dates: start: 20180911, end: 20190305
  13. FESIN [SACCHARATED IRON OXIDE] [Concomitant]
     Active Substance: IRON SUCROSE
     Dosage: 40 MILLIGRAM, QWK
     Route: 041
     Dates: end: 20200109
  14. P?TOL [MANNITOL] [Concomitant]
     Active Substance: MANNITOL
     Dosage: 1500 MILLIGRAM, QD
     Route: 048
     Dates: start: 20200326
  15. ROCALTROL [Concomitant]
     Active Substance: CALCITRIOL
     Dosage: 0.5 UG, Q56H
     Route: 042
     Dates: start: 20181018, end: 20181110
  16. ROCALTROL [Concomitant]
     Active Substance: CALCITRIOL
     Dosage: 1.0 UG, Q56H
     Route: 042
     Dates: start: 20190326, end: 20190413
  17. ROCALTROL [Concomitant]
     Active Substance: CALCITRIOL
     Dosage: 1.0 UG, QW
     Route: 042
     Dates: start: 20190416, end: 20190611
  18. ROCALTROL [Concomitant]
     Active Substance: CALCITRIOL
     Dosage: 0.5 UG, Q56H
     Route: 042
     Dates: start: 20200111
  19. PARSABIV [Suspect]
     Active Substance: ETELCALCETIDE HYDROCHLORIDE
     Dosage: 2.5 MG, Q56H
     Route: 010
     Dates: start: 20190326, end: 20200111
  20. OXAROL [Concomitant]
     Active Substance: MAXACALCITOL
     Dosage: 5 UG
     Route: 042
     Dates: start: 2018, end: 20180619
  21. PARSABIV [Suspect]
     Active Substance: ETELCALCETIDE HYDROCHLORIDE
     Dosage: 2.5 MG, Q56H
     Route: 010
     Dates: start: 20200519
  22. P?TOL [MANNITOL] [Concomitant]
     Active Substance: MANNITOL
     Dosage: 750 MILLIGRAM
     Route: 048
  23. P?TOL [MANNITOL] [Concomitant]
     Active Substance: MANNITOL
     Dosage: 750 MILLIGRAM, QD
     Route: 048
     Dates: end: 20200325

REACTIONS (12)
  - Shunt stenosis [Recovered/Resolved]
  - Ankle fracture [Recovered/Resolved]
  - Ankle fracture [Recovered/Resolved]
  - Product prescribing error [Unknown]
  - Urinary tract infection [Recovered/Resolved]
  - Pyrexia [Recovered/Resolved]
  - Urinary tract infection [Recovered/Resolved]
  - Shunt stenosis [Recovered/Resolved]
  - Calculus urinary [Recovered/Resolved]
  - Avulsion fracture [Recovered/Resolved]
  - Urinary tract infection [Recovered/Resolved]
  - Peripheral arterial occlusive disease [Recovered/Resolved]

NARRATIVE: CASE EVENT DATE: 20181012
